FAERS Safety Report 5612355-0 (Version None)
Quarter: 2008Q1

REPORT INFORMATION
  Report Type: 
  Country: None (occurrence: None)
  Receive Date: 20080204
  Receipt Date: 20080123
  Transmission Date: 20080703
  Serious: Yes (Other)
  Sender: FDA-Public Use
  Company Number: US-SANOFI-SYNTHELABO-A03200706608

PATIENT
  Sex: Female
  Weight: 104.6 kg

DRUGS (6)
  1. INVESTIGATIONAL DRUG [Concomitant]
     Indication: FIBROMYALGIA
     Dosage: UNK
     Route: 065
     Dates: start: 20071102, end: 20071116
  2. TYLENOL [Concomitant]
     Indication: PAIN
     Dosage: 1000MG BID, PRN
     Route: 065
     Dates: start: 20071026
  3. BENADRYL [Concomitant]
     Indication: INSOMNIA
     Route: 065
     Dates: start: 20071018
  4. VITAMIN CAP [Concomitant]
     Indication: SUPPLEMENTATION THERAPY
     Route: 065
     Dates: start: 20060101
  5. PROTONIX [Concomitant]
     Indication: REFLUX OESOPHAGITIS
     Route: 065
     Dates: start: 20060101
  6. AMBIEN [Suspect]
     Indication: INSOMNIA
     Route: 048
     Dates: start: 20071114

REACTIONS (5)
  - EXCORIATION [None]
  - FALL [None]
  - GRAND MAL CONVULSION [None]
  - PAIN [None]
  - URINARY INCONTINENCE [None]
